FAERS Safety Report 15501267 (Version 1)
Quarter: 2018Q4

REPORT INFORMATION
  Report Type: Report from Study
  Country: US (occurrence: US)
  Receive Date: 20181015
  Receipt Date: 20181015
  Transmission Date: 20190205
  Serious: Yes (Death, Hospitalization)
  Sender: FDA-Public Use
  Company Number: US-ACTELION-A-US2018-174995

PATIENT
  Age: 63 Year
  Sex: Female
  Weight: 61.68 kg

DRUGS (1)
  1. OPSUMIT [Suspect]
     Active Substance: MACITENTAN
     Indication: PULMONARY ARTERIAL HYPERTENSION
     Dosage: 10 MG, QD
     Route: 048

REACTIONS (6)
  - Decubitus ulcer [Unknown]
  - Muscle twitching [Unknown]
  - Influenza like illness [Unknown]
  - Pyrexia [Unknown]
  - Death [Fatal]
  - Speech disorder [Unknown]
